FAERS Safety Report 8306254-3 (Version None)
Quarter: 2012Q2

REPORT INFORMATION
  Report Type: 
  Country: None (occurrence: None)
  Receive Date: 20120423
  Receipt Date: 20120416
  Transmission Date: 20120825
  Serious: No
  Sender: FDA-Public Use
  Company Number: US-PFIZER INC-2012095431

PATIENT
  Age: 36 Year
  Sex: Male
  Weight: 86.168 kg

DRUGS (4)
  1. SINGULAIR [Concomitant]
     Dosage: 10 MG, DAILY
  2. VIAGRA [Suspect]
     Dosage: 100 MG, EVERY 3 DAYS
     Dates: start: 20070101
  3. HUMALOG [Concomitant]
     Indication: DIABETES MELLITUS
     Dosage: 4 IU, WITH EVERY MEAL
  4. PRILOSEC [Concomitant]
     Dosage: 40 MG, DAILY

REACTIONS (1)
  - DRUG INEFFECTIVE [None]
